FAERS Safety Report 4837729-7 (Version None)
Quarter: 2005Q4

REPORT INFORMATION
  Report Type: 
  Country: None (occurrence: None)
  Receive Date: 20051128
  Receipt Date: 20051004
  Transmission Date: 20060501
  Serious: Yes (Death, Hospitalization)
  Sender: FDA-Public Use
  Company Number: US-MERCK-0510USA03114

PATIENT
  Age: 67 Year
  Sex: Male
  Weight: 105 kg

DRUGS (1)
  1. VIOXX [Suspect]
     Indication: ARTHRITIS
     Route: 048

REACTIONS (16)
  - CEREBROVASCULAR ACCIDENT [None]
  - DIABETES MELLITUS [None]
  - FLUID OVERLOAD [None]
  - FUNGAEMIA [None]
  - HAEMORRHAGIC INFARCTION [None]
  - HERPES SIMPLEX [None]
  - HYPERTENSION [None]
  - PNEUMONIA [None]
  - PULMONARY CAVITATION [None]
  - PULMONARY EMBOLISM [None]
  - PULMONARY HAEMORRHAGE [None]
  - RENAL FAILURE [None]
  - SEPTIC SHOCK [None]
  - SINUSITIS [None]
  - STAPHYLOCOCCAL INFECTION [None]
  - WEIGHT DECREASED [None]
